FAERS Safety Report 6337480-0 (Version None)
Quarter: 2009Q3

REPORT INFORMATION
  Report Type: 
  Country: None (occurrence: None)
  Receive Date: 20090902
  Receipt Date: 20090824
  Transmission Date: 20100115
  Serious: Yes (Death, Hospitalization, Other)
  Sender: FDA-Public Use
  Company Number: JP-TEVA-207492ISR

PATIENT

DRUGS (2)
  1. CISPLATIN [Suspect]
     Indication: GASTRIC CANCER
     Dosage: IN DAYS 1-15 AND 29
     Route: 042
  2. PACLITAXEL [Suspect]
     Indication: GASTRIC CANCER
     Dosage: ON DAYS 1-15 AND 29
     Route: 042

REACTIONS (8)
  - DISSEMINATED INTRAVASCULAR COAGULATION [None]
  - FATIGUE [None]
  - HYPONATRAEMIA [None]
  - NAUSEA [None]
  - OESOPHAGITIS [None]
  - PNEUMONIA [None]
  - THROMBOCYTOPENIA [None]
  - VOMITING [None]
